FAERS Safety Report 5032819-0 (Version None)
Quarter: 2006Q2

REPORT INFORMATION
  Report Type: 
  Country: None (occurrence: None)
  Receive Date: 20060622
  Receipt Date: 20060612
  Transmission Date: 20061013
  Serious: Yes (Other)
  Sender: FDA-Public Use
  Company Number: 2006UW12482

PATIENT
  Age: 34 Year
  Sex: Female
  Weight: 73.5 kg

DRUGS (1)
  1. SEROQUEL [Suspect]
     Route: 048

REACTIONS (2)
  - HYPOTENSION [None]
  - OVERDOSE [None]
